FAERS Safety Report 8058123-4 (Version None)
Quarter: 2012Q1

REPORT INFORMATION
  Report Type: 
  Country: None (occurrence: None)
  Receive Date: 20120117
  Receipt Date: 20120117
  Transmission Date: 20120608
  Serious: No
  Sender: FDA-Public Use
  Company Number: None

PATIENT

DRUGS (1)
  1. APOARIO PROPOLIS GLYCOLIC SOLUTION [Suspect]
     Dates: start: 20111101, end: 20111201

REACTIONS (4)
  - DRUG INEFFECTIVE [None]
  - PRODUCT COUNTERFEIT [None]
  - MOUTH ULCERATION [None]
  - CONDITION AGGRAVATED [None]
